FAERS Safety Report 18489859 (Version 2)
Quarter: 2020Q4

REPORT INFORMATION
  Report Type: Report from Study
  Country: AU (occurrence: AU)
  Receive Date: 20201111
  Receipt Date: 20201118
  Transmission Date: 20210114
  Serious: Yes (Hospitalization)
  Sender: FDA-Public Use
  Company Number: NVSC2020AU275552

PATIENT
  Age: 60 Year
  Sex: Female

DRUGS (4)
  1. MAYZENT [Suspect]
     Active Substance: SIPONIMOD
     Dosage: UNK
     Route: 065
  2. TARGIN [Concomitant]
     Active Substance: NALOXONE HYDROCHLORIDE\OXYCODONE HYDROCHLORIDE
     Indication: PRODUCT USED FOR UNKNOWN INDICATION
     Dosage: 10/5MG, BID
     Route: 065
  3. ENDONE [Concomitant]
     Active Substance: OXYCODONE HYDROCHLORIDE
     Indication: PRODUCT USED FOR UNKNOWN INDICATION
     Dosage: UNK
     Route: 065
  4. MAYZENT [Suspect]
     Active Substance: SIPONIMOD
     Indication: SECONDARY PROGRESSIVE MULTIPLE SCLEROSIS
     Dosage: 2 MG, QD
     Route: 048
     Dates: start: 20201011, end: 20201012

REACTIONS (17)
  - Paraesthesia [Unknown]
  - Hypoaesthesia [Recovered/Resolved]
  - Mobility decreased [Unknown]
  - Gait disturbance [Unknown]
  - Drug dose titration not performed [Unknown]
  - Gait inability [Unknown]
  - Pain [Unknown]
  - Pain in extremity [Unknown]
  - Hypoaesthesia [Recovered/Resolved]
  - Somnolence [Unknown]
  - Tremor [Unknown]
  - Product dispensing error [Unknown]
  - Hypoaesthesia [Recovered/Resolved]
  - Feeling abnormal [Unknown]
  - Muscular weakness [Unknown]
  - Nervousness [Unknown]
  - Fatigue [Unknown]

NARRATIVE: CASE EVENT DATE: 20200911
